FAERS Safety Report 19582700 (Version 1)
Quarter: 2021Q3

REPORT INFORMATION
  Report Type: Spontaneous
  Country: US (occurrence: US)
  Receive Date: 20210719
  Receipt Date: 20210719
  Transmission Date: 20211014
  Serious: No
  Sender: FDA-Public Use
  Company Number: None

PATIENT
  Age: 37 Year
  Sex: Male

DRUGS (1)
  1. DICYCLOMINE [Suspect]
     Active Substance: DICYCLOMINE HYDROCHLORIDE
     Indication: IRRITABLE BOWEL SYNDROME
     Route: 048
     Dates: start: 20210209, end: 20210303

REACTIONS (7)
  - Dizziness [None]
  - Headache [None]
  - Nausea [None]
  - Vomiting [None]
  - Dry mouth [None]
  - Diarrhoea [None]
  - Delirium [None]

NARRATIVE: CASE EVENT DATE: 20210304
